FAERS Safety Report 24241771 (Version 1)
Quarter: 2024Q3

REPORT INFORMATION
  Report Type: Spontaneous
  Country: ES (occurrence: ES)
  Receive Date: 20240823
  Receipt Date: 20240823
  Transmission Date: 20241017
  Serious: Yes (Other)
  Sender: ROCHE
  Company Number: None

PATIENT
  Age: 61 Year
  Sex: Male
  Weight: 132 kg

DRUGS (3)
  1. VABYSMO [Suspect]
     Active Substance: FARICIMAB\FARICIMAB-SVOA
     Indication: Cystoid macular oedema
     Dosage: INYECCION INTRAVITREA
     Route: 047
     Dates: start: 20240715, end: 20240715
  2. GLYBURIDE [Concomitant]
     Active Substance: GLYBURIDE
     Dates: start: 2022
  3. ZOMARIS [Concomitant]
     Indication: Diabetes mellitus
     Dates: start: 2019

REACTIONS (1)
  - Acute macular neuroretinopathy [Not Recovered/Not Resolved]

NARRATIVE: CASE EVENT DATE: 20240715
